FAERS Safety Report 11629808 (Version 1)
Quarter: 2015Q4

REPORT INFORMATION
  Report Type: Spontaneous
  Country: US (occurrence: US)
  Receive Date: 20151014
  Receipt Date: 20151014
  Transmission Date: 20160304
  Serious: No
  Sender: FDA-Public Use
  Company Number: US-PFIZER INC-2015338849

PATIENT
  Age: 62 Year
  Sex: Female
  Weight: 52 kg

DRUGS (5)
  1. CHANTIX [Suspect]
     Active Substance: VARENICLINE TARTRATE
     Indication: SMOKING CESSATION THERAPY
     Dosage: 0.05 MG, DAILY
     Dates: start: 20150928, end: 2015
  2. CHANTIX [Suspect]
     Active Substance: VARENICLINE TARTRATE
     Dosage: 1 MG, UNK
     Dates: start: 2015, end: 2015
  3. XANAX [Concomitant]
     Active Substance: ALPRAZOLAM
     Dosage: UNK
  4. CHANTIX [Suspect]
     Active Substance: VARENICLINE TARTRATE
     Dosage: 0.05 MG, 2X/DAY
     Dates: start: 2015, end: 2015
  5. CHANTIX [Suspect]
     Active Substance: VARENICLINE TARTRATE
     Dosage: 1 MG, 2X/DAY, MORNING AND AT BEDTIME
     Dates: start: 2015

REACTIONS (13)
  - Dizziness [Recovering/Resolving]
  - Nightmare [Recovering/Resolving]
  - Crying [Recovering/Resolving]
  - Drug intolerance [Unknown]
  - Drug ineffective [Not Recovered/Not Resolved]
  - Nausea [Recovering/Resolving]
  - Malaise [Recovering/Resolving]
  - Bed rest [Recovering/Resolving]
  - Disorientation [Recovering/Resolving]
  - Chills [Recovering/Resolving]
  - Dyspnoea [Recovering/Resolving]
  - Intentional product misuse [Unknown]
  - Palpitations [Recovering/Resolving]

NARRATIVE: CASE EVENT DATE: 2015
